FAERS Safety Report 19698952 (Version 1)
Quarter: 2021Q3

REPORT INFORMATION
  Report Type: Spontaneous
  Country: US (occurrence: US)
  Receive Date: 20210813
  Receipt Date: 20210813
  Transmission Date: 20211014
  Serious: No
  Sender: FDA-Public Use
  Company Number: US-PFIZER INC-202101012255

PATIENT
  Age: 66 Year
  Sex: Male

DRUGS (2)
  1. INLYTA [Suspect]
     Active Substance: AXITINIB
     Dosage: 3 MG, 2X/DAY
     Route: 048
     Dates: start: 20210308
  2. INLYTA [Suspect]
     Active Substance: AXITINIB
     Indication: RENAL CELL CARCINOMA
     Dosage: 5 MG, 2X/DAY

REACTIONS (11)
  - Asthenia [Recovered/Resolved]
  - Diarrhoea [Unknown]
  - Disorientation [Unknown]
  - Hyperkeratosis [Unknown]
  - Skin burning sensation [Unknown]
  - Lethargy [Unknown]
  - Dry skin [Unknown]
  - Pruritus [Unknown]
  - Nail disorder [Unknown]
  - Arthralgia [Unknown]
  - Dizziness [Unknown]
